FAERS Safety Report 6552205-1 (Version None)
Quarter: 2010Q1

REPORT INFORMATION
  Report Type: 
  Country: None (occurrence: None)
  Receive Date: 20100126
  Receipt Date: 20090929
  Transmission Date: 20100710
  Serious: Yes (Hospitalization)
  Sender: FDA-Public Use
  Company Number: US-MERCK-0909USA03567

PATIENT
  Age: 61 Year
  Sex: Male

DRUGS (3)
  1. JANUVIA [Suspect]
     Indication: TYPE 2 DIABETES MELLITUS
     Route: 048
     Dates: start: 20090911, end: 20090921
  2. COREG [Concomitant]
     Route: 065
  3. ALTACE [Concomitant]
     Route: 065

REACTIONS (5)
  - DECREASED APPETITE [None]
  - DEPRESSION [None]
  - NIGHT SWEATS [None]
  - TREMOR [None]
  - WEIGHT DECREASED [None]
